FAERS Safety Report 11243705 (Version 1)
Quarter: 2015Q3

REPORT INFORMATION
  Report Type: Spontaneous
  Country: US (occurrence: None)
  Receive Date: 20150702
  Receipt Date: 20150702
  Transmission Date: 20151125
  Serious: Yes (Congenital Anomaly, Other)
  Sender: FDA-Public Use
  Company Number: None

PATIENT
  Age: 34 Year
  Sex: Male
  Weight: 81.65 kg

DRUGS (2)
  1. LAMICTAL [Concomitant]
     Active Substance: LAMOTRIGINE
  2. CARBATROL [Suspect]
     Active Substance: CARBAMAZEPINE
     Indication: SEIZURE
     Route: 048
     Dates: start: 20110901, end: 20150701

REACTIONS (6)
  - Spermatozoa progressive motility decreased [None]
  - Sperm concentration decreased [None]
  - Autism [None]
  - Developmental delay [None]
  - Paternal drugs affecting foetus [None]
  - Exposure via father [None]

NARRATIVE: CASE EVENT DATE: 20121228
